FAERS Safety Report 8005158-3 (Version None)
Quarter: 2011Q4

REPORT INFORMATION
  Report Type: 
  Country: None (occurrence: None)
  Receive Date: 20111223
  Receipt Date: 20111221
  Transmission Date: 20120403
  Serious: No
  Sender: FDA-Public Use
  Company Number: US-BAYER-2011-122870

PATIENT
  Age: 45 Year
  Sex: Female
  Weight: 82 kg

DRUGS (4)
  1. ALEVE (CAPLET) [Suspect]
     Indication: BACK PAIN
     Dosage: 2 DF, PRN
     Route: 048
     Dates: start: 20110101, end: 20110101
  2. ANALGESICS [Concomitant]
  3. OSTEO BI-FLEX [Concomitant]
  4. ASPIRIN [Suspect]
     Indication: PAIN
     Dosage: 3 DF, PRN
     Route: 048

REACTIONS (3)
  - ABDOMINAL DISCOMFORT [None]
  - BACK PAIN [None]
  - PAIN [None]
